FAERS Safety Report 6338445-5 (Version None)
Quarter: 2009Q3

REPORT INFORMATION
  Report Type: 
  Country: None (occurrence: None)
  Receive Date: 20090901
  Receipt Date: 20090819
  Transmission Date: 20100115
  Serious: Yes (Hospitalization)
  Sender: FDA-Public Use
  Company Number: 239300K09USA

PATIENT
  Age: 78 Year
  Sex: Female
  Weight: 55 kg

DRUGS (2)
  1. REBIF [Suspect]
     Indication: MULTIPLE SCLEROSIS
     Dosage: 44 MCG, 3 IN 1 WEEKS, SUBCUTANEOUS
     Route: 058
     Dates: start: 20070104
  2. BETHANECHOL (BETHANECHOL) [Concomitant]

REACTIONS (3)
  - CARDIAC ENZYMES INCREASED [None]
  - CONVULSION [None]
  - RECTAL HAEMORRHAGE [None]
